FAERS Safety Report 15642057 (Version 2)
Quarter: 2018Q4

REPORT INFORMATION
  Report Type: Spontaneous
  Country: US (occurrence: US)
  Receive Date: 20181121
  Receipt Date: 20181228
  Transmission Date: 20190205
  Serious: Yes (Other)
  Sender: FDA-Public Use
  Company Number: US-ASTRAZENECA-2018SF52123

PATIENT
  Age: 27459 Day
  Sex: Female
  Weight: 62.6 kg

DRUGS (2)
  1. CALCIUM [Concomitant]
     Active Substance: CALCIUM
     Dosage: EVERY DAY
     Route: 048
  2. SYMBICORT [Suspect]
     Active Substance: BUDESONIDE\FORMOTEROL FUMARATE DIHYDRATE
     Indication: NEOPLASM MALIGNANT
     Dosage: 160/4.5MCG 2 PUFFS TWICE DAILY
     Route: 055
     Dates: start: 20181005

REACTIONS (12)
  - Memory impairment [Unknown]
  - Pneumonia [Unknown]
  - Intentional device misuse [Unknown]
  - Metastases to lung [Unknown]
  - Product dose omission [Unknown]
  - Product use in unapproved indication [Unknown]
  - Decreased appetite [Unknown]
  - Off label use [Unknown]
  - Weight decreased [Unknown]
  - Malaise [Unknown]
  - Hypophagia [Unknown]
  - Device issue [Unknown]

NARRATIVE: CASE EVENT DATE: 20181108
